FAERS Safety Report 8502193 (Version 5)
Quarter: 2014Q3

REPORT INFORMATION
  Report Type: Spontaneous
  Country: US (occurrence: US)
  Receive Date: 20120404
  Receipt Date: 20140822
  Transmission Date: 20150326
  Serious: Yes (Hospitalization, Other)
  Sender: FDA-Public Use
  Company Number: US-009507513-2012SP000175

PATIENT
  Sex: Female
  Weight: 131.5 kg

DRUGS (1)
  1. NUVARING [Suspect]
     Active Substance: ETHINYL ESTRADIOL\ETONOGESTREL
     Indication: CONTRACEPTION
     Route: 067
     Dates: start: 20090303, end: 201002

REACTIONS (8)
  - Deep vein thrombosis [Unknown]
  - Ligament sprain [Unknown]
  - Hepatic steatosis [Unknown]
  - Muscle strain [Unknown]
  - Cholelithiasis [Recovered/Resolved]
  - Pulmonary embolism [Unknown]
  - Fall [Unknown]
  - Cholecystectomy [Unknown]

NARRATIVE: CASE EVENT DATE: 20090710
